FAERS Safety Report 16951960 (Version 1)
Quarter: 2019Q4

REPORT INFORMATION
  Report Type: Spontaneous
  Country: US (occurrence: US)
  Receive Date: 20191023
  Receipt Date: 20191023
  Transmission Date: 20200122
  Serious: Yes (Death)
  Sender: FDA-Public Use
  Company Number: US-ENDO PHARMACEUTICALS INC-2019-108858

PATIENT
  Sex: Female
  Weight: 45.35 kg

DRUGS (3)
  1. MEGACE ES [Suspect]
     Active Substance: MEGESTROL ACETATE
     Indication: DECREASED APPETITE
     Dosage: UNK UNKNOWN, UNKNOWN
     Route: 065
     Dates: end: 20190810
  2. MEGACE ES [Suspect]
     Active Substance: MEGESTROL ACETATE
     Indication: WEIGHT DECREASED
  3. LORAZEPAM. [Concomitant]
     Active Substance: LORAZEPAM
     Indication: ANXIETY
     Dosage: UNK UNKNOWN, UNK; HOURLY AS NEEDED
     Route: 065

REACTIONS (1)
  - Abdominal neoplasm [Fatal]

NARRATIVE: CASE EVENT DATE: 2019
